FAERS Safety Report 21335778 (Version 1)
Quarter: 2022Q3

REPORT INFORMATION
  Report Type: Spontaneous
  Country: US (occurrence: US)
  Receive Date: 20220915
  Receipt Date: 20220915
  Transmission Date: 20221027
  Serious: No
  Sender: FDA-Public Use
  Company Number: US-BRISTOL-MYERS SQUIBB COMPANY-BMS-2022-019717

PATIENT
  Age: 48 Year
  Sex: Male

DRUGS (1)
  1. LENALIDOMIDE [Suspect]
     Active Substance: LENALIDOMIDE
     Indication: Product used for unknown indication
     Dosage: FREQUENCY- OTHERS
     Route: 048

REACTIONS (3)
  - Fatigue [Unknown]
  - Asthenia [Unknown]
  - Tremor [Unknown]

NARRATIVE: CASE EVENT DATE: 20220801
